FAERS Safety Report 6038211-4 (Version None)
Quarter: 2009Q1

REPORT INFORMATION
  Report Type: 
  Country: None (occurrence: None)
  Receive Date: 20090115
  Receipt Date: 20090105
  Transmission Date: 20090719
  Serious: Yes (Hospitalization)
  Sender: FDA-Public Use
  Company Number: DE-PFIZER INC-2008097845

PATIENT

DRUGS (18)
  1. NORVASC [Suspect]
  2. PRAVASTATIN [Concomitant]
     Dosage: 20 MG, 1X/DAY
     Route: 048
  3. METOPROLOL SUCCINATE [Concomitant]
     Dosage: 47.5 MG, 1X/DAY
  4. CARBIMAZOLE [Concomitant]
     Dosage: 10 MG, 1X/DAY
  5. ALLOPURINOL [Concomitant]
     Dosage: 100 MG, 1X/DAY
  6. RAMIPRIL [Concomitant]
     Dosage: UNK
  7. CITALOPRAM [Concomitant]
     Dosage: 20 MG, 1X/DAY
  8. MARCUMAR [Concomitant]
     Dosage: UNK
  9. PANTOZOL [Concomitant]
     Dosage: UNK
  10. DELIX [Concomitant]
     Dosage: 5 MG, 2X/DAY
  11. ESIDRIX [Concomitant]
     Dosage: 12.5 UNK, 1X/DAY
  12. DIGITOXIN TAB [Concomitant]
     Dosage: 0.1 UNK, 1X/DAY
  13. ENOXAPARIN SODIUM [Concomitant]
     Dosage: 0.4 UNK, 1X/DAY
     Route: 058
  14. ACTRAPID [Concomitant]
     Dosage: UNK
     Route: 058
  15. LANTUS [Concomitant]
     Dosage: 22 IU, 1X/DAY
     Route: 058
  16. ESOMEPRAZOLE [Concomitant]
     Dosage: 10 MG, 1X/DAY
  17. CLOPIDOGREL [Concomitant]
     Dosage: 75 MG, 1X/DAY
  18. TORASEMIDE [Concomitant]
     Dosage: 10 MG, 1X/DAY

REACTIONS (1)
  - ANAEMIA [None]
